FAERS Safety Report 12547373 (Version 1)
Quarter: 2016Q3

REPORT INFORMATION
  Report Type: Spontaneous
  Country: US (occurrence: US)
  Receive Date: 20160711
  Receipt Date: 20160711
  Transmission Date: 20161109
  Serious: No
  Sender: FDA-Public Use
  Company Number: US-AMGEN-USASP2016088170

PATIENT
  Age: 45 Year
  Sex: Male

DRUGS (2)
  1. ENBREL [Suspect]
     Active Substance: ETANERCEPT
     Indication: ANKYLOSING SPONDYLITIS
     Dosage: 50 MG, QWK
     Route: 065
  2. VITAMIN B12 [Concomitant]
     Active Substance: CYANOCOBALAMIN
     Indication: VITAMIN B12 DEFICIENCY
     Dosage: UNK

REACTIONS (9)
  - Inflammation [Not Recovered/Not Resolved]
  - Lymphadenopathy [Unknown]
  - Fatigue [Unknown]
  - Flushing [Unknown]
  - Asthenia [Unknown]
  - Weight decreased [Unknown]
  - Abscess oral [Unknown]
  - Feeling hot [Unknown]
  - Pyrexia [Unknown]
